FAERS Safety Report 11279606 (Version 1)
Quarter: 2015Q3

REPORT INFORMATION
  Report Type: Spontaneous
  Country: US (occurrence: None)
  Receive Date: 20150715
  Receipt Date: 20150715
  Transmission Date: 20151125
  Serious: Yes (Hospitalization)
  Sender: FDA-Public Use
  Company Number: None

PATIENT
  Age: 36 Year
  Sex: Female
  Weight: 70.31 kg

DRUGS (6)
  1. MERCAPTOPURINE. [Suspect]
     Active Substance: MERCAPTOPURINE
     Indication: CROHN^S DISEASE
     Dosage: 1/EVERY MORNING
     Route: 048
     Dates: start: 20150430, end: 20150605
  2. BIOTIN [Concomitant]
     Active Substance: BIOTIN
  3. AMOXICILLIN. [Concomitant]
     Active Substance: AMOXICILLIN
  4. MULTI VITAMIN [Concomitant]
     Active Substance: VITAMINS
  5. VITAMIN D3 [Concomitant]
     Active Substance: CHOLECALCIFEROL
  6. CALCIUM [Concomitant]
     Active Substance: CALCIUM

REACTIONS (2)
  - Febrile neutropenia [None]
  - Alopecia [None]

NARRATIVE: CASE EVENT DATE: 20150606
